FAERS Safety Report 19139081 (Version 3)
Quarter: 2021Q2

REPORT INFORMATION
  Report Type: Report from Study
  Country: CA (occurrence: CA)
  Receive Date: 20210415
  Receipt Date: 20210615
  Transmission Date: 20210717
  Serious: Yes (Other)
  Sender: FDA-Public Use
  Company Number: CA-JNJFOC-20210415226

PATIENT
  Age: 73 Year
  Sex: Female

DRUGS (19)
  1. COUMADIN [Concomitant]
     Active Substance: WARFARIN SODIUM
  2. ATORVASTATIN [Concomitant]
     Active Substance: ATORVASTATIN
  3. POTASSIUM K 20 [Concomitant]
  4. FOLIC ACID. [Concomitant]
     Active Substance: FOLIC ACID
  5. TOLOXIN [DIGOXIN] [Concomitant]
  6. ZAROXOLYN [Concomitant]
     Active Substance: METOLAZONE
     Indication: WEIGHT INCREASED
  7. FUROSEMIDE. [Concomitant]
     Active Substance: FUROSEMIDE
     Indication: OEDEMA PERIPHERAL
  8. VITAMIN B1 [Concomitant]
     Active Substance: THIAMINE HYDROCHLORIDE
  9. TYLENOL [Concomitant]
     Active Substance: ACETAMINOPHEN
  10. OXYGEN. [Concomitant]
     Active Substance: OXYGEN
     Dosage: OXYGENOTHERAPY 6 LITERS 24/24, 6 LITERS 24/24
  11. ADCIRCA [Concomitant]
     Active Substance: TADALAFIL
  12. CALCIUM [Concomitant]
     Active Substance: CALCIUM
  13. MACITENTAN [Suspect]
     Active Substance: MACITENTAN
     Indication: PULMONARY HYPERTENSION
     Route: 048
     Dates: start: 20210329
  14. MAGNESIUM [Concomitant]
     Active Substance: MAGNESIUM
  15. BISOPROLOL [Concomitant]
     Active Substance: BISOPROLOL
  16. ATIVAN [Concomitant]
     Active Substance: LORAZEPAM
     Dosage: WHEN NEEDED
  17. REACTINE [CETIRIZINE HYDROCHLORIDE] [Concomitant]
     Active Substance: CETIRIZINE HYDROCHLORIDE
     Indication: PSORIASIS
  18. VITAMIN D [ERGOCALCIFEROL] [Concomitant]
     Active Substance: ERGOCALCIFEROL
  19. RANITIDINE. [Concomitant]
     Active Substance: RANITIDINE

REACTIONS (3)
  - Oedema peripheral [Recovering/Resolving]
  - Dyspnoea [Not Recovered/Not Resolved]
  - Weight increased [Recovering/Resolving]

NARRATIVE: CASE EVENT DATE: 2021
